FAERS Safety Report 9531942 (Version 2)
Quarter: 2013Q3

REPORT INFORMATION
  Report Type: Report from Study
  Country: US (occurrence: US)
  Receive Date: 20130918
  Receipt Date: 20130918
  Transmission Date: 20140515
  Serious: Yes (Other)
  Sender: FDA-Public Use
  Company Number: US-TAKEDA-0237361

PATIENT
  Sex: 0

DRUGS (11)
  1. CICLESONIDE [Suspect]
     Indication: PRODUCT USED FOR UNKNOWN INDICATION
     Route: 045
     Dates: start: 20121018, end: 20130319
  2. ALEVE [Concomitant]
     Dosage: UNK
     Dates: start: 20090101
  3. IBUPROFEN [Concomitant]
     Dosage: UNK
     Dates: start: 19880101
  4. LEXAPRO [Concomitant]
     Dosage: UNK
     Dates: start: 20120502
  5. NUVARING [Concomitant]
     Dates: start: 20020101
  6. ZYRTEC [Concomitant]
     Dosage: UNK
     Dates: start: 20090101
  7. GUAIFENESIN [Concomitant]
     Dosage: UNK
     Dates: start: 20130112
  8. ACETAMINOPHEN [Concomitant]
     Dosage: UNK
     Dates: start: 20121018
  9. ZOLOFT [Concomitant]
     Dates: start: 20070101, end: 20120614
  10. PRENATAL VITAMINS                  /01549301/ [Concomitant]
     Dosage: UNK
     Dates: start: 2013, end: 2013
  11. MULTIVITAMINS [Concomitant]
     Dosage: UNK

REACTIONS (2)
  - Abortion spontaneous [Recovered/Resolved]
  - Exposure during pregnancy [Unknown]
